FAERS Safety Report 7404049-6 (Version None)
Quarter: 2011Q2

REPORT INFORMATION
  Report Type: 
  Country: None (occurrence: None)
  Receive Date: 20110408
  Receipt Date: 20110307
  Transmission Date: 20111010
  Serious: Yes (Hospitalization, Other)
  Sender: FDA-Public Use
  Company Number: US-BAYER-201035901NA

PATIENT
  Age: 26 Year
  Sex: Female

DRUGS (7)
  1. YASMIN [Suspect]
     Indication: PRODUCT USED FOR UNKNOWN INDICATION
     Dosage: UNK UNK, UNK
     Route: 048
     Dates: start: 20030901, end: 20031201
  2. OCELLA [Suspect]
     Indication: PRODUCT USED FOR UNKNOWN INDICATION
     Route: 048
     Dates: start: 20080701, end: 20081001
  3. YASMIN [Suspect]
     Route: 048
     Dates: start: 20071201, end: 20080601
  4. IRON [Concomitant]
  5. POTASSIUM [Concomitant]
  6. YASMIN [Suspect]
     Route: 048
     Dates: start: 20041201, end: 20061101
  7. TANDEM OB [Concomitant]
     Route: 048

REACTIONS (2)
  - CHOLECYSTITIS [None]
  - CHOLELITHIASIS [None]
